FAERS Safety Report 6217829-X (Version None)
Quarter: 2009Q2

REPORT INFORMATION
  Report Type: 
  Country: None (occurrence: None)
  Receive Date: 20090608
  Receipt Date: 20080805
  Transmission Date: 20091009
  Serious: Yes (Other)
  Sender: FDA-Public Use
  Company Number: FR-ALLERGAN-0808236US

PATIENT
  Age: 73 Year
  Sex: Male

DRUGS (3)
  1. LUMIGAN [Suspect]
     Indication: OPEN ANGLE GLAUCOMA
     Dosage: 1 GTT, QD
     Route: 047
     Dates: start: 20040101, end: 20080501
  2. ALPHAGAN [Concomitant]
     Indication: OPEN ANGLE GLAUCOMA
     Dosage: 1 GTT, BID
     Route: 047
     Dates: start: 20020901
  3. COSOPT [Concomitant]
     Indication: OPEN ANGLE GLAUCOMA
     Dosage: 1 GTT, BID
     Route: 047
     Dates: start: 20021001

REACTIONS (2)
  - EYE NAEVUS [None]
  - EYELID RETRACTION [None]
